FAERS Safety Report 6471708-1 (Version None)
Quarter: 2009Q4

REPORT INFORMATION
  Report Type: 
  Country: None (occurrence: None)
  Receive Date: 20091203
  Receipt Date: 20090522
  Transmission Date: 20100525
  Serious: Yes (Hospitalization, Other)
  Sender: FDA-Public Use
  Company Number: US-ELI_LILLY_AND_COMPANY-US200803003358

PATIENT
  Sex: Female
  Weight: 81.633 kg

DRUGS (1)
  1. ZYPREXA [Suspect]
     Dates: start: 20000101, end: 20020101

REACTIONS (7)
  - ABSCESS [None]
  - BLOOD CHOLESTEROL ABNORMAL [None]
  - CATHETERISATION CARDIAC [None]
  - GLYCOSURIA [None]
  - HYPERGLYCAEMIA [None]
  - TYPE 2 DIABETES MELLITUS [None]
  - VISION BLURRED [None]
